FAERS Safety Report 8214120-7 (Version None)
Quarter: 2012Q1

REPORT INFORMATION
  Report Type: 
  Country: None (occurrence: None)
  Receive Date: 20120316
  Receipt Date: 20120305
  Transmission Date: 20120608
  Serious: Yes (Hospitalization, Other)
  Sender: FDA-Public Use
  Company Number: US-SHIRE-SPV1-2012-00249

PATIENT
  Age: 6 Year
  Sex: Male
  Weight: 29.478 kg

DRUGS (5)
  1. MOTRIN [Concomitant]
     Indication: HEADACHE
     Dosage: 200 MG, UNKNOWN
     Route: 048
     Dates: start: 20120220
  2. BLINDED 503 (GUANFACINE HYDROCHLORIDE) [Suspect]
     Indication: PSYCHOMOTOR HYPERACTIVITY
     Dosage: UNK
     Dates: start: 20120214
  3. BLINDED PLACEBO [Suspect]
     Dates: end: 20120228
  4. BLINDED PLACEBO [Suspect]
     Indication: PSYCHOMOTOR HYPERACTIVITY
     Dosage: UNK
     Dates: start: 20120214
  5. BLINDED 503 (GUANFACINE HYDROCHLORIDE) [Suspect]
     Dates: end: 20120228

REACTIONS (3)
  - PRESSURE OF SPEECH [None]
  - AGGRESSION [None]
  - MENTAL STATUS CHANGES [None]
